FAERS Safety Report 8135381-9 (Version None)
Quarter: 2012Q1

REPORT INFORMATION
  Report Type: 
  Country: None (occurrence: None)
  Receive Date: 20120214
  Receipt Date: 20120202
  Transmission Date: 20120608
  Serious: Yes (Other)
  Sender: FDA-Public Use
  Company Number: JP-JNJFOC-20120202847

PATIENT
  Sex: Male

DRUGS (11)
  1. SITAGLIPTIN PHOSPHATE [Concomitant]
     Route: 048
  2. INHIBACE [Concomitant]
     Route: 048
  3. ZYRTEC [Suspect]
     Route: 048
  4. ALLOPURINOL [Concomitant]
     Route: 048
  5. NEUQUINON [Concomitant]
     Route: 048
  6. VITANEURIN [Concomitant]
     Route: 048
  7. FAMOTIDINE [Concomitant]
     Route: 048
  8. LYSOZYME HYDROCHLORIDE [Concomitant]
     Route: 048
  9. ZYRTEC [Suspect]
     Indication: RHINORRHOEA
     Route: 048
     Dates: start: 20111227, end: 20120106
  10. AMLODIPINE [Concomitant]
     Route: 048
  11. AMARYL [Concomitant]
     Route: 048

REACTIONS (3)
  - WEIGHT INCREASED [None]
  - LIVER FUNCTION TEST ABNORMAL [None]
  - OEDEMA PERIPHERAL [None]
